FAERS Safety Report 18046438 (Version 1)
Quarter: 2020Q3

REPORT INFORMATION
  Report Type: Spontaneous
  Country: DE (occurrence: DE)
  Receive Date: 20200720
  Receipt Date: 20200720
  Transmission Date: 20201103
  Serious: Yes (Other)
  Sender: FDA-Public Use
  Company Number: DE-PFIZER INC-2020274848

PATIENT
  Age: 83 Year
  Sex: Male

DRUGS (3)
  1. HYDROMORPHONE [Concomitant]
     Active Substance: HYDROMORPHONE
  2. NALOXEGOL [Concomitant]
     Active Substance: NALOXEGOL
  3. VYNDAQEL [Suspect]
     Active Substance: TAFAMIDIS MEGLUMINE
     Dosage: 61 MG

REACTIONS (2)
  - Restlessness [Recovering/Resolving]
  - Diabetes mellitus [Unknown]
